FAERS Safety Report 8664422 (Version 6)
Quarter: 2013Q2

REPORT INFORMATION
  Report Type: Report from Study
  Country: US (occurrence: US)
  Receive Date: 20120713
  Receipt Date: 20130410
  Transmission Date: 20140414
  Serious: Yes (Hospitalization, Other)
  Sender: FDA-Public Use
  Company Number: US-JNJFOC-20120701984

PATIENT
  Age: 78 Year
  Sex: Male
  Weight: 64.5 kg

DRUGS (17)
  1. ABIRATERONE ACETATE [Suspect]
     Indication: PROSTATE CANCER METASTATIC
     Route: 048
     Dates: start: 20120715
  2. ABIRATERONE ACETATE [Suspect]
     Indication: PROSTATE CANCER METASTATIC
     Route: 048
     Dates: start: 20111013
  3. ABIRATERONE ACETATE [Suspect]
     Indication: PROSTATE CANCER METASTATIC
     Route: 048
     Dates: start: 20120621, end: 20120630
  4. PREDNISONE [Concomitant]
     Indication: PROSTATE CANCER METASTATIC
     Route: 048
     Dates: start: 20120621, end: 20120630
  5. PREDNISONE [Concomitant]
     Indication: PROSTATE CANCER METASTATIC
     Route: 048
     Dates: start: 20111013
  6. PREDNISONE [Concomitant]
     Indication: PROSTATE CANCER METASTATIC
     Route: 048
     Dates: start: 20120715
  7. POTASSIUM CHLORIDE [Concomitant]
     Route: 048
     Dates: start: 20120621
  8. ZOLPIDEM [Concomitant]
     Indication: INSOMNIA
     Route: 048
     Dates: start: 20111013
  9. VENOFER [Concomitant]
     Indication: MINERAL SUPPLEMENTATION
     Dosage: WEEKLY X 6 WEEKS
     Route: 042
     Dates: start: 20120525
  10. CIPROFLOXACIN [Concomitant]
     Route: 048
     Dates: start: 20120426
  11. COLACE [Concomitant]
     Indication: CONSTIPATION
     Route: 065
  12. NASONEX [Concomitant]
     Indication: HYPERSENSITIVITY
  13. VANTAS [Concomitant]
     Indication: HORMONE THERAPY
     Dates: start: 20080115
  14. FLOMAX [Concomitant]
     Indication: MEDICAL DEVICE PAIN
     Dates: start: 20090316
  15. MONOPRIL [Concomitant]
     Indication: HYPERTENSION
     Dates: start: 20120124
  16. XANAX [Concomitant]
     Indication: ANXIETY
     Dates: start: 20120727
  17. AMLODIPINE [Concomitant]
     Indication: HYPERTENSION
     Dates: start: 20120720

REACTIONS (3)
  - Nephrectomy [Recovered/Resolved]
  - Haematuria [Recovered/Resolved]
  - Ureteric stenosis [Recovered/Resolved]
